FAERS Safety Report 18241044 (Version 1)
Quarter: 2020Q3

REPORT INFORMATION
  Report Type: Spontaneous
  Country: US (occurrence: US)
  Receive Date: 20200904
  Receipt Date: 20200904
  Transmission Date: 20201103
  Serious: No
  Sender: FDA-Public Use
  Company Number: None

PATIENT
  Age: 86 Year
  Sex: Female

DRUGS (1)
  1. TIGECYCLINE 50 MG FRESENIUS KABI USA [Suspect]
     Active Substance: TIGECYCLINE
     Indication: OSTEOMYELITIS
     Dosage: ?          OTHER ROUTE:IV?
     Route: 042
     Dates: start: 20200814

REACTIONS (3)
  - Lip swelling [None]
  - Peripheral swelling [None]
  - Face oedema [None]

NARRATIVE: CASE EVENT DATE: 20200818
